FAERS Safety Report 13008976 (Version 1)
Quarter: 2016Q4

REPORT INFORMATION
  Report Type: Spontaneous
  Country: DE (occurrence: DE)
  Receive Date: 20161208
  Receipt Date: 20161208
  Transmission Date: 20170207
  Serious: Yes (Other)
  Sender: FDA-Public Use
  Company Number: DE-PFIZER INC-2016566789

PATIENT
  Age: 29 Year
  Sex: Female
  Weight: 46 kg

DRUGS (1)
  1. PANTOZOL [Suspect]
     Active Substance: PANTOPRAZOLE SODIUM
     Indication: DYSPEPSIA
     Dosage: 40 MG, 1X/DAY
     Route: 048
     Dates: start: 20161120

REACTIONS (7)
  - Hypoaesthesia [Unknown]
  - Circulatory collapse [Recovered/Resolved]
  - Respiratory distress [Recovered/Resolved]
  - Swollen tongue [Unknown]
  - Palpitations [Recovered/Resolved]
  - Pruritus [Recovered/Resolved]
  - Diarrhoea [Recovered/Resolved]

NARRATIVE: CASE EVENT DATE: 20161120
